FAERS Safety Report 9598133 (Version 1)
Quarter: 2013Q4

REPORT INFORMATION
  Report Type: Spontaneous
  Country: US (occurrence: US)
  Receive Date: 20131004
  Receipt Date: 20131004
  Transmission Date: 20140711
  Serious: No
  Sender: FDA-Public Use
  Company Number: US-AMGEN-USASP2013022540

PATIENT
  Age: 62 Year
  Sex: Female
  Weight: 79.82 kg

DRUGS (7)
  1. ENBREL [Suspect]
     Indication: PRODUCT USED FOR UNKNOWN INDICATION
     Dosage: 50 MG, QWK
     Route: 058
  2. ATIVAN [Concomitant]
     Dosage: 2 MG, UNK
  3. VITAMIN B12                        /00056201/ [Concomitant]
     Dosage: 1000 CR, UNK
  4. PRAVASTATIN [Concomitant]
     Dosage: 20 MG, UNK
  5. ENALAPRIL [Concomitant]
     Dosage: 20 MG, UNK
  6. ATARAX                             /00058401/ [Concomitant]
     Dosage: 10 MG/5ML, UNK
  7. BUPROPION [Concomitant]
     Dosage: 150 MG, UNK

REACTIONS (1)
  - Drug ineffective [Unknown]
